FAERS Safety Report 8836647 (Version 1)
Quarter: 2012Q4

REPORT INFORMATION
  Report Type: Spontaneous
  Country: US (occurrence: None)
  Receive Date: 20121011
  Receipt Date: 20121011
  Transmission Date: 20130627
  Serious: Yes (Other)
  Sender: FDA-Public Use
  Company Number: RB-27350-2011

PATIENT
  Age: 6 Year
  Sex: Male

DRUGS (1)
  1. SUBOXONE [Suspect]
     Indication: ACCIDENTAL EXPOSURE TO PRODUCT
     Dosage: (Sublingual Film- Dosing information unknown- 16 mg Unknown)
     Route: 060
     Dates: start: 20110427, end: 20110427

REACTIONS (1)
  - Accidental exposure to product [None]
